FAERS Safety Report 24538130 (Version 1)
Quarter: 2024Q4

REPORT INFORMATION
  Report Type: Spontaneous
  Country: US (occurrence: US)
  Receive Date: 20241023
  Receipt Date: 20241023
  Transmission Date: 20250115
  Serious: No
  Sender: TEVA
  Company Number: US-TEVA-VS-3250479

PATIENT
  Sex: Female

DRUGS (1)
  1. DOXEPIN [Suspect]
     Active Substance: DOXEPIN
     Indication: Insomnia
     Route: 065

REACTIONS (1)
  - Somnolence [Not Recovered/Not Resolved]
